FAERS Safety Report 18185763 (Version 1)
Quarter: 2020Q3

REPORT INFORMATION
  Report Type: Spontaneous
  Country: ES (occurrence: ES)
  Receive Date: 20200824
  Receipt Date: 20200824
  Transmission Date: 20201103
  Serious: Yes (Other)
  Sender: FDA-Public Use
  Company Number: ES-TEVA-2020-ES-1817045

PATIENT
  Age: 34 Year
  Sex: Male

DRUGS (4)
  1. TIMOGLOBULINA 5MG/ML POLVO PARA SOLUCION PARA PERFUSION, 1 VIAL [Suspect]
     Active Substance: LAPINE T-LYMPHOCYTE IMMUNE GLOBULIN
     Indication: RENAL TRANSPLANT
     Dosage: 100 MG
     Route: 042
     Dates: start: 20200310, end: 20200315
  2. METILPREDNISOLONA (888A) [Suspect]
     Active Substance: METHYLPREDNISOLONE
     Indication: RENAL TRANSPLANT
     Dosage: 100 MG
     Route: 042
     Dates: start: 20200310, end: 20200311
  3. HIDROCORTISONA (54A) [Suspect]
     Active Substance: HYDROCORTISONE
     Indication: RENAL TRANSPLANT
     Dosage: 100 MG
     Route: 042
     Dates: start: 20200310, end: 20200310
  4. MICOFENOLATO DE MOFETILO (7330LM) [Suspect]
     Active Substance: MYCOPHENOLATE MOFETIL
     Indication: PROPHYLAXIS AGAINST GRAFT VERSUS HOST DISEASE
     Dosage: 1440 MILLIGRAM DAILY;
     Route: 048
     Dates: start: 20200310

REACTIONS (1)
  - Pancreatitis acute [Recovered/Resolved]

NARRATIVE: CASE EVENT DATE: 20200315
